FAERS Safety Report 15460708 (Version 1)
Quarter: 2018Q4

REPORT INFORMATION
  Report Type: Spontaneous
  Country: DE (occurrence: DE)
  Receive Date: 20181003
  Receipt Date: 20181003
  Transmission Date: 20190204
  Serious: Yes (Other)
  Sender: FDA-Public Use
  Company Number: PHHY2018DE115134

PATIENT
  Age: 81 Year
  Sex: Male

DRUGS (1)
  1. TAMSULOSIN ? 1 A PHARMA [Suspect]
     Active Substance: TAMSULOSIN
     Indication: PROSTATOMEGALY
     Dosage: 0.4 MG, QD
     Route: 065

REACTIONS (2)
  - Urinary retention [Unknown]
  - Penile discharge [Unknown]
